FAERS Safety Report 4370225-2 (Version None)
Quarter: 2004Q2

REPORT INFORMATION
  Report Type: 
  Country: None (occurrence: None)
  Receive Date: 20040603
  Receipt Date: 20040413
  Transmission Date: 20050107
  Serious: No
  Sender: FDA-Public Use
  Company Number: US-BRISTOL-MYERS SQUIBB COMPANY-12563854

PATIENT
  Age: 27 Year
  Sex: Male

DRUGS (3)
  1. ABILIFY [Suspect]
     Indication: CEREBRAL PALSY
     Route: 048
  2. ABILIFY [Suspect]
     Indication: NEUROSIS
     Route: 048
  3. VALPROIC ACID [Concomitant]

REACTIONS (2)
  - AURICULAR SWELLING [None]
  - PNEUMONIA [None]
